FAERS Safety Report 7346858-8 (Version None)
Quarter: 2011Q1

REPORT INFORMATION
  Report Type: 
  Country: None (occurrence: None)
  Receive Date: 20110311
  Receipt Date: 20110301
  Transmission Date: 20110831
  Serious: Yes (Hospitalization, Other)
  Sender: FDA-Public Use
  Company Number: US-CELGENEUS-163-21880-11012634

PATIENT
  Sex: Female
  Weight: 61.744 kg

DRUGS (7)
  1. PREDNISONE [Concomitant]
     Route: 065
  2. REVLIMID [Suspect]
     Indication: MULTIPLE MYELOMA
     Dosage: 15 MILLIGRAM
     Route: 048
     Dates: start: 20100630
  3. COUMADIN [Concomitant]
     Route: 065
  4. LEXAPRO [Concomitant]
     Route: 065
  5. OMEPRAZOLE [Concomitant]
     Route: 065
  6. ALBUTEROL [Concomitant]
     Route: 065
  7. ARICEPT [Concomitant]
     Route: 065

REACTIONS (4)
  - URINARY TRACT INFECTION [None]
  - HEAD INJURY [None]
  - HIP FRACTURE [None]
  - FALL [None]
